FAERS Safety Report 16425165 (Version 1)
Quarter: 2019Q2

REPORT INFORMATION
  Report Type: Spontaneous
  Country: US (occurrence: US)
  Receive Date: 20190613
  Receipt Date: 20190613
  Transmission Date: 20190711
  Serious: No
  Sender: FDA-Public Use
  Company Number: US-DRREDDYS-USA/USA/19/0110837

PATIENT
  Sex: Female

DRUGS (1)
  1. MYOFLEX [Suspect]
     Active Substance: TROLAMINE SALICYLATE
     Indication: PAIN
     Route: 065

REACTIONS (2)
  - Expired product administered [Not Recovered/Not Resolved]
  - Blister [Not Recovered/Not Resolved]
